FAERS Safety Report 9912191 (Version 1)
Quarter: 2014Q1

REPORT INFORMATION
  Report Type: Spontaneous
  Country: US (occurrence: US)
  Receive Date: 20140220
  Receipt Date: 20140220
  Transmission Date: 20141002
  Serious: Yes (Other)
  Sender: FDA-Public Use
  Company Number: US-RANBAXY-2014US-78317

PATIENT
  Age: 48 Year
  Sex: Male

DRUGS (8)
  1. PANTOPRAZOLE [Suspect]
     Indication: PRODUCT USED FOR UNKNOWN INDICATION
     Dosage: UNK
     Route: 065
     Dates: start: 2012
  2. CARBOPLATIN [Concomitant]
     Indication: T-CELL LYMPHOMA
     Dosage: UNK
     Route: 065
  3. IFOSFAMIDE [Concomitant]
     Indication: T-CELL LYMPHOMA
     Dosage: UNK
     Route: 065
  4. ETOPOSIDE [Concomitant]
     Indication: T-CELL LYMPHOMA
     Dosage: UNK
     Route: 065
  5. CYCLOPHOSPHAMIDE [Concomitant]
     Indication: T-CELL LYMPHOMA
     Dosage: UNK
     Route: 065
     Dates: start: 201205
  6. VINCRISTINE [Concomitant]
     Indication: T-CELL LYMPHOMA
     Dosage: UNK
     Route: 065
     Dates: start: 201205
  7. PREDNISONE [Concomitant]
     Indication: T-CELL LYMPHOMA
     Dosage: UNK
     Route: 065
     Dates: start: 201205
  8. DOXORUBICIN [Concomitant]
     Indication: T-CELL LYMPHOMA
     Dosage: UNK
     Route: 065
     Dates: start: 201205

REACTIONS (3)
  - Acute prerenal failure [Unknown]
  - Renal failure acute [Unknown]
  - Tubulointerstitial nephritis [Unknown]
